FAERS Safety Report 6388230-3 (Version None)
Quarter: 2009Q4

REPORT INFORMATION
  Report Type: 
  Country: None (occurrence: None)
  Receive Date: 20091001
  Receipt Date: 20091001
  Transmission Date: 20100525
  Serious: Yes (Life-Threatening, Hospitalization)
  Sender: FDA-Public Use
  Company Number: None

PATIENT
  Age: 58 Year
  Sex: Male

DRUGS (1)
  1. INSULIN [Suspect]
     Dosage: 50 UNITS BID SQ
     Route: 058
     Dates: start: 20090516

REACTIONS (4)
  - CONVULSION [None]
  - HALLUCINATION [None]
  - HYPOGLYCAEMIA [None]
  - MENTAL STATUS CHANGES [None]
